FAERS Safety Report 18225595 (Version 5)
Quarter: 2022Q2

REPORT INFORMATION
  Report Type: Other
  Country: DE (occurrence: None)
  Receive Date: 20200903
  Receipt Date: 20220406
  Transmission Date: 20220720
  Serious: Yes (Hospitalization)
  Sender: FDA-Public Use
  Company Number: DE-ROCHE-2533183

PATIENT
  Age: 25 Year
  Sex: Female

DRUGS (2)
  1. OCREVUS [Suspect]
     Active Substance: OCRELIZUMAB
     Indication: Relapsing-remitting multiple sclerosis
     Dosage: SUBSEQUENT DOSE: 16/DEC/2019, 03/JUN/2020
     Route: 042
     Dates: start: 20191202, end: 20191202
  2. MAGNESIUM [Concomitant]
     Active Substance: MAGNESIUM

REACTIONS (17)
  - Extrasystoles [Recovered/Resolved]
  - Headache [Recovered/Resolved]
  - Cardiovascular disorder [Recovered/Resolved]
  - Myalgia [Recovered/Resolved]
  - Mental disorder [Recovered/Resolved]
  - Sleep disorder [Recovered/Resolved]
  - Influenza [Recovered/Resolved]
  - Dyspnoea [Recovered/Resolved]
  - Palpitations [Recovered/Resolved]
  - Pain [Not Recovered/Not Resolved]
  - Hypoaesthesia [Not Recovered/Not Resolved]
  - Tinnitus [Not Recovered/Not Resolved]
  - Menstrual disorder [Not Recovered/Not Resolved]
  - Acne [Not Recovered/Not Resolved]
  - B-lymphocyte count decreased [Not Recovered/Not Resolved]
  - Visual impairment [Recovered/Resolved]
  - Multiple sclerosis relapse [Not Recovered/Not Resolved]

NARRATIVE: CASE EVENT DATE: 20191202
